FAERS Safety Report 9739215 (Version 4)
Quarter: 2014Q1

REPORT INFORMATION
  Report Type: Spontaneous
  Country: JP (occurrence: JP)
  Receive Date: 20131209
  Receipt Date: 20140206
  Transmission Date: 20141002
  Serious: Yes (Life-Threatening, Disabling)
  Sender: FDA-Public Use
  Company Number: JP-SHIRE-ALL1-2013-08503

PATIENT
  Age: 85 Year
  Sex: Male

DRUGS (11)
  1. FOSRENOL [Suspect]
     Indication: HYPERPHOSPHATAEMIA
     Dosage: 250 MG, 3X/DAY:TID
     Route: 048
     Dates: start: 20131101, end: 20131124
  2. FOSRENOL [Concomitant]
     Indication: HYPERPHOSPHATAEMIA
     Dosage: 750 MG, UNKNOWN
     Route: 048
     Dates: start: 201210, end: 20131031
  3. RISUMIC [Concomitant]
     Indication: BLOOD PRESSURE DECREASED
     Dosage: 10 MG, OTHER (DAY OF DIALYSIS)
     Route: 048
     Dates: start: 20131101
  4. AMOBAN [Concomitant]
     Indication: INSOMNIA
     Dosage: 7.5 MG, UNKNOWN
     Route: 048
     Dates: start: 20131101
  5. PURSENNIDE                         /00571901/ [Concomitant]
     Indication: CONSTIPATION
     Dosage: 12 MG, UNKNOWN
     Route: 048
     Dates: start: 20131101
  6. ALFAROL [Concomitant]
     Indication: METABOLIC DISORDER
     Dosage: 0.25 ?G, UNKNOWN
     Route: 048
     Dates: start: 20131101
  7. EVOXAC [Concomitant]
     Indication: SJOGREN^S SYNDROME
     Dosage: 60 MG, UNKNOWN
     Route: 048
     Dates: start: 20131101
  8. GASCON [Concomitant]
     Indication: ABDOMINAL DISTENSION
     Dosage: 120 MG, UNKNOWN
     Route: 048
     Dates: start: 20131101
  9. MIYA BM [Concomitant]
     Indication: CONSTIPATION
     Dosage: 60 MG, UNKNOWN
     Route: 048
     Dates: start: 20131101
  10. MIYA BM [Concomitant]
     Indication: ENTEROCOLITIS
  11. CALTAN [Concomitant]
     Indication: HYPERPHOSPHATAEMIA
     Dosage: 3 G, UNKNOWN
     Route: 048
     Dates: start: 20131101, end: 20131218

REACTIONS (4)
  - Rectal ulcer haemorrhage [Recovered/Resolved]
  - Melaena [Recovered/Resolved]
  - Activities of daily living impaired [Not Recovered/Not Resolved]
  - Wrong technique in drug usage process [Unknown]
